FAERS Safety Report 5063630-2 (Version None)
Quarter: 2006Q3

REPORT INFORMATION
  Report Type: 
  Country: None (occurrence: None)
  Receive Date: 20060727
  Receipt Date: 20060719
  Transmission Date: 20061208
  Serious: Yes (Other)
  Sender: FDA-Public Use
  Company Number: US-JNJFOC-20060704663

PATIENT
  Sex: Female
  Weight: 68.04 kg

DRUGS (18)
  1. DURAGESIC-100 [Suspect]
     Indication: PAIN
     Route: 062
  2. LYRICA [Concomitant]
     Indication: NEUROPATHY
     Route: 048
  3. CLONAZEPAM [Concomitant]
     Indication: CONVULSION
     Route: 048
  4. CRESTOR [Concomitant]
     Indication: BLOOD CHOLESTEROL INCREASED
     Route: 048
  5. ZETIA [Concomitant]
     Indication: BLOOD CHOLESTEROL INCREASED
     Route: 048
  6. DILAUDID [Concomitant]
     Indication: BREAKTHROUGH PAIN
     Route: 048
  7. SOMA [Concomitant]
     Indication: MUSCLE RELAXANT THERAPY
     Dosage: 350 MG AT BEDTIME, ORAL
     Route: 048
  8. BENADRYL [Concomitant]
     Indication: HYPERSENSITIVITY
     Dosage: 100 MG EVERY 8 HOURS, AS NEEDED, ORAL
     Route: 048
  9. REQUIP [Concomitant]
     Indication: RESTLESS LEGS SYNDROME
     Dosage: 3 MG AT BEDTIME, ORAL
     Route: 048
  10. NEXIUM [Concomitant]
     Indication: GASTROOESOPHAGEAL REFLUX DISEASE
     Route: 048
  11. DEPO-PROVERA SUSPENSION/INJ [Concomitant]
     Indication: ENDOMETRIOSIS
     Route: 030
  12. ACTOS [Concomitant]
     Indication: DIABETES MELLITUS
     Route: 048
  13. AMARYL [Concomitant]
     Indication: DIABETES MELLITUS
     Route: 048
  14. HUMALOG [Concomitant]
     Indication: DIABETES MELLITUS
     Dosage: 20 IU, AT BREAKFAST AND LUNCH, 30 IU AT DINNER, SUBCUTANEOUS
     Route: 058
  15. LANTUS [Concomitant]
     Indication: DIABETES MELLITUS
     Dosage: 100 IU, AT NIGHT, SUBCUTANEOUS
     Route: 058
  16. LAMICTAL [Concomitant]
     Indication: CONVULSION
     Route: 048
  17. FLOMAX [Concomitant]
     Indication: URINARY RETENTION
     Route: 048
  18. METHENAMINE [Concomitant]
     Indication: URINARY RETENTION
     Route: 048

REACTIONS (6)
  - APPLICATION SITE DERMATITIS [None]
  - APPLICATION SITE ERYTHEMA [None]
  - APPLICATION SITE PRURITUS [None]
  - MUSCLE SPASMS [None]
  - OEDEMA [None]
  - SYSTEMIC LUPUS ERYTHEMATOSUS [None]
